FAERS Safety Report 5833706-8 (Version None)
Quarter: 2008Q3

REPORT INFORMATION
  Report Type: 
  Country: None (occurrence: None)
  Receive Date: 20080804
  Receipt Date: 20080804
  Transmission Date: 20090109
  Serious: Yes (Life-Threatening, Hospitalization)
  Sender: FDA-Public Use
  Company Number: None

PATIENT
  Age: 70 Year
  Sex: Female
  Weight: 53.5244 kg

DRUGS (2)
  1. INDOMETHACIN [Suspect]
     Indication: GOUT
     Dosage: TID PO
     Route: 048
     Dates: start: 20080801, end: 20080801
  2. LANTUS [Suspect]
     Indication: DIABETES MELLITUS
     Dosage: SQ
     Route: 058
     Dates: start: 20070103, end: 20080803

REACTIONS (1)
  - HYPOGLYCAEMIA [None]
